FAERS Safety Report 6488676-9 (Version None)
Quarter: 2009Q4

REPORT INFORMATION
  Report Type: 
  Country: None (occurrence: None)
  Receive Date: 20091207
  Receipt Date: 20091124
  Transmission Date: 20100525
  Serious: Yes (Other)
  Sender: FDA-Public Use
  Company Number: 1000010568

PATIENT
  Age: 22 Year
  Sex: Female

DRUGS (1)
  1. ESCITALOPRAM [Suspect]

REACTIONS (4)
  - HYPERMETROPIA [None]
  - MYOPIA [None]
  - SCOTOMA [None]
  - TENSION HEADACHE [None]
